FAERS Safety Report 9374154 (Version 5)
Quarter: 2013Q3

REPORT INFORMATION
  Report Type: Spontaneous
  Country: US (occurrence: US)
  Receive Date: 20130628
  Receipt Date: 20130815
  Transmission Date: 20140515
  Serious: No
  Sender: FDA-Public Use
  Company Number: US-PFIZER INC-2013191019

PATIENT
  Age: 48 Year
  Sex: Female

DRUGS (1)
  1. LYRICA [Suspect]
     Dosage: 150 MG, 2X/DAY

REACTIONS (3)
  - Arthritis [Unknown]
  - Anxiety [Unknown]
  - Emotional disorder [Unknown]
